FAERS Safety Report 23363722 (Version 1)
Quarter: 2024Q1

REPORT INFORMATION
  Report Type: Spontaneous
  Country: JP (occurrence: JP)
  Receive Date: 20240103
  Receipt Date: 20240103
  Transmission Date: 20240409
  Serious: Yes (Death, Other)
  Sender: FDA-Public Use
  Company Number: JP-BAXTER-2023BAX037937

PATIENT
  Age: 52 Year
  Sex: Female

DRUGS (1)
  1. REGUNEAL LCA [Suspect]
     Active Substance: CALCIUM CHLORIDE\DEXTROSE MONOHYDRATE\HYDROCHLORIC ACID\MAGNESIUM CHLORIDE\SODIUM BICARBONATE\SODIUM
     Dosage: 7.5 LITERS
     Route: 033

REACTIONS (1)
  - Death [Fatal]

NARRATIVE: CASE EVENT DATE: 20231209
